FAERS Safety Report 4447631-0 (Version None)
Quarter: 2004Q3

REPORT INFORMATION
  Report Type: 
  Country: None (occurrence: None)
  Receive Date: 20040913
  Receipt Date: 20040830
  Transmission Date: 20050211
  Serious: Yes (Death)
  Sender: FDA-Public Use
  Company Number: US-JNJFOC-20040810098

PATIENT
  Sex: Male

DRUGS (1)
  1. DURAGESIC [Suspect]
     Route: 062
     Dates: end: 20040626

REACTIONS (1)
  - DEATH [None]
